FAERS Safety Report 8013530-0 (Version None)
Quarter: 2011Q4

REPORT INFORMATION
  Report Type: 
  Country: None (occurrence: None)
  Receive Date: 20111229
  Receipt Date: 20111219
  Transmission Date: 20120403
  Serious: Yes (Death)
  Sender: FDA-Public Use
  Company Number: US-PFIZER INC-2011309993

PATIENT
  Age: 45 Year
  Sex: Female

DRUGS (10)
  1. SPIRONOLACTONE [Suspect]
  2. TOPIRAMATE [Suspect]
  3. MONTELUKAST [Suspect]
  4. DIAZEPAM [Suspect]
  5. PHENOBARBITAL TAB [Suspect]
  6. CLONAZEPAM [Suspect]
  7. GABAPENTIN [Suspect]
  8. PROGESTIN INJ [Suspect]
  9. TEMAZEPAM [Suspect]
  10. NAPROXEN [Suspect]

REACTIONS (1)
  - COMPLETED SUICIDE [None]
